FAERS Safety Report 8549416-2 (Version None)
Quarter: 2012Q3

REPORT INFORMATION
  Report Type: 
  Country: None (occurrence: None)
  Receive Date: 20120730
  Receipt Date: 20120723
  Transmission Date: 20120928
  Serious: Yes (Other)
  Sender: FDA-Public Use
  Company Number: JP-ROCHE-1090948

PATIENT
  Age: 7 Decade
  Sex: Male

DRUGS (12)
  1. LOXOPROFEN [Concomitant]
     Indication: PAIN
     Route: 048
  2. LOXOPROFEN [Concomitant]
     Dosage: 60MG-120MG/DAY
     Route: 048
  3. LEVOLEUCOVORIN CALCIUM [Concomitant]
     Indication: COLON CANCER RECURRENT
     Dosage: DOSAGE IS UNCERTAIN.
     Route: 041
  4. OXYCODONE HCL [Concomitant]
     Route: 048
  5. FLUOROURACIL [Concomitant]
     Indication: COLON CANCER RECURRENT
     Dosage: DOSAGE IS UNCERTAIN.
     Route: 040
  6. OXALIPLATIN [Concomitant]
     Indication: COLON CANCER RECURRENT
     Dosage: DOSAGE IS UNCERTAIN.
     Route: 041
  7. XELODA [Suspect]
     Indication: COLON CANCER RECURRENT
     Dosage: DOSAGE IS UNCERTAIN.
     Route: 048
  8. AVASTIN [Suspect]
     Indication: COLON CANCER RECURRENT
     Dosage: DOSAGE IS UNCERTAIN.
     Route: 041
  9. FLUOROURACIL [Concomitant]
     Dosage: DOSAGE IS UNCERTAIN.
     Route: 041
  10. LOXOPROFEN [Concomitant]
     Route: 048
  11. OXYCODONE HCL [Concomitant]
     Indication: PAIN
     Route: 048
  12. IRINOTECAN HCL [Concomitant]
     Indication: COLON CANCER RECURRENT
     Dosage: DOSAGE IS UNCERTAIN.
     Route: 041

REACTIONS (2)
  - URETERIC OBSTRUCTION [None]
  - EXTRAVASATION OF URINE [None]
